FAERS Safety Report 7652098-5 (Version None)
Quarter: 2011Q3

REPORT INFORMATION
  Report Type: 
  Country: None (occurrence: None)
  Receive Date: 20110803
  Receipt Date: 20101221
  Transmission Date: 20111222
  Serious: Yes (Other)
  Sender: FDA-Public Use
  Company Number: US-BAYER-201016613NA

PATIENT
  Sex: Female
  Weight: 94 kg

DRUGS (20)
  1. COUMADIN [Concomitant]
  2. NEXIUM [Concomitant]
  3. EPOGEN [Concomitant]
     Indication: ANAEMIA
     Dosage: AS NEEDED FOR DIALYSIS
  4. TUMS [CALCIUM CARBONATE] [Concomitant]
  5. IRON [IRON] [Concomitant]
     Indication: ANAEMIA PROPHYLAXIS
  6. EVISTA [Concomitant]
  7. OMNISCAN [Suspect]
     Indication: VITAMIN SUPPLEMENTATION
  8. SENSIPAR [Concomitant]
     Route: 048
  9. WARFARIN SODIUM [Concomitant]
  10. MAGNEVIST [Suspect]
     Indication: NUCLEAR MAGNETIC RESONANCE IMAGING BRAIN
     Dates: start: 20020403, end: 20020403
  11. LIPITOR [Concomitant]
  12. MAGNEVIST [Suspect]
     Indication: HYPOAESTHESIA
  13. OPTIMARK [Suspect]
     Indication: IMAGING PROCEDURE
  14. RENAL [VITAMINS NOS] [Concomitant]
     Indication: VITAMIN SUPPLEMENTATION
     Route: 048
  15. RENAGEL [Concomitant]
     Dates: start: 20021014
  16. ANTIBIOTICS [Concomitant]
  17. MULTIHANCE [Suspect]
     Indication: IMAGING PROCEDURE
  18. PROHANCE [Suspect]
     Indication: IMAGING PROCEDURE
  19. PROCRIT [Concomitant]
     Dates: start: 20021015
  20. ASPIRIN [Concomitant]

REACTIONS (19)
  - SKIN DISORDER [None]
  - OEDEMA [None]
  - MUSCULOSKELETAL STIFFNESS [None]
  - MUSCLE TIGHTNESS [None]
  - MOBILITY DECREASED [None]
  - OEDEMA PERIPHERAL [None]
  - NEPHROGENIC SYSTEMIC FIBROSIS [None]
  - PAIN IN EXTREMITY [None]
  - SKIN INDURATION [None]
  - MUSCULAR WEAKNESS [None]
  - JOINT SWELLING [None]
  - SKIN FIBROSIS [None]
  - PAIN [None]
  - DEFORMITY [None]
  - SCAR [None]
  - ARTHRALGIA [None]
  - SKIN HYPERTROPHY [None]
  - SKIN TIGHTNESS [None]
  - MUSCLE CONTRACTURE [None]
